FAERS Safety Report 24329203 (Version 1)
Quarter: 2024Q3

REPORT INFORMATION
  Report Type: Spontaneous
  Country: US (occurrence: US)
  Receive Date: 20240917
  Receipt Date: 20240917
  Transmission Date: 20241016
  Serious: No
  Sender: EMD SERONO INC
  Company Number: US-Merck Healthcare KGaA-2024048900

PATIENT

DRUGS (1)
  1. GONAL-F [Suspect]
     Active Substance: FOLLITROPIN
     Indication: Product used for unknown indication
     Dosage: EXPIRY DATE: DEC 2025

REACTIONS (3)
  - Injection site irritation [Unknown]
  - Injection site erythema [Unknown]
  - Product use issue [Unknown]
